FAERS Safety Report 5214860-8 (Version None)
Quarter: 2006Q4

REPORT INFORMATION
  Report Type: 
  Country: None (occurrence: None)
  Receive Date: 20061107
  Receipt Date: 20060608
  Transmission Date: 20070319
  Serious: No
  Sender: FDA-Public Use
  Company Number: 200614025BWH

PATIENT
  Sex: Male

DRUGS (1)
  1. LEVITRA [Suspect]
     Dosage: 10/15 MG, BIW, ORAL
     Route: 048
     Dates: start: 20060530

REACTIONS (1)
  - ERECTION INCREASED [None]
